FAERS Safety Report 8255708-7 (Version None)
Quarter: 2012Q2

REPORT INFORMATION
  Report Type: 
  Country: None (occurrence: None)
  Receive Date: 20120403
  Receipt Date: 20120403
  Transmission Date: 20120825
  Serious: Yes (Life-Threatening)
  Sender: FDA-Public Use
  Company Number: None

PATIENT
  Age: 66 Year
  Sex: Female
  Weight: 77.11 kg

DRUGS (1)
  1. RECLAST [Suspect]
     Indication: OSTEOPOROSIS
     Dosage: IV INJECTION
     Route: 041
     Dates: start: 20120321, end: 20120321

REACTIONS (7)
  - FEELING COLD [None]
  - HYPERSOMNIA [None]
  - ABDOMINAL PAIN [None]
  - CHILLS [None]
  - FATIGUE [None]
  - APPARENT DEATH [None]
  - MYALGIA [None]
